FAERS Safety Report 9784486 (Version 2)
Quarter: 2014Q1

REPORT INFORMATION
  Report Type: Spontaneous
  Country: US (occurrence: US)
  Receive Date: 20131226
  Receipt Date: 20140113
  Transmission Date: 20141002
  Serious: Yes (Hospitalization)
  Sender: FDA-Public Use
  Company Number: US-BAXTER-2013BAX051176

PATIENT
  Sex: Female

DRUGS (2)
  1. DIANEAL LOW CALCIUM [Suspect]
     Indication: PERITONEAL DIALYSIS
     Route: 033
     Dates: start: 201008
  2. DIANEAL LOW CALCIUM [Suspect]
     Route: 033
     Dates: start: 201008

REACTIONS (2)
  - Nephrolithiasis [Recovered/Resolved]
  - Discomfort [Unknown]
